FAERS Safety Report 16856454 (Version 4)
Quarter: 2023Q2

REPORT INFORMATION
  Report Type: Spontaneous
  Country: US (occurrence: US)
  Receive Date: 20190926
  Receipt Date: 20230407
  Transmission Date: 20230721
  Serious: Yes (Death, Hospitalization, Other)
  Sender: FDA-Public Use
  Company Number: US-GILEAD-2019-0429624

PATIENT
  Age: 23 Year
  Sex: Male
  Weight: 72.562 kg

DRUGS (69)
  1. TRUVADA [Suspect]
     Active Substance: EMTRICITABINE\TENOFOVIR DISOPROXIL FUMARATE
     Indication: HIV infection
     Dosage: UNK
     Route: 048
     Dates: start: 2008
  2. TRUVADA [Suspect]
     Active Substance: EMTRICITABINE\TENOFOVIR DISOPROXIL FUMARATE
     Dosage: UNK
     Route: 065
     Dates: start: 2007, end: 2013
  3. TRUVADA [Suspect]
     Active Substance: EMTRICITABINE\TENOFOVIR DISOPROXIL FUMARATE
     Dosage: UNK
     Route: 048
     Dates: start: 20100324, end: 20130308
  4. TRUVADA [Suspect]
     Active Substance: EMTRICITABINE\TENOFOVIR DISOPROXIL FUMARATE
     Dosage: UNK
     Route: 048
     Dates: start: 2004, end: 2013
  5. VIREAD [Suspect]
     Active Substance: TENOFOVIR DISOPROXIL FUMARATE
     Indication: HIV infection
     Dosage: UNK
     Route: 065
     Dates: start: 20130923, end: 20131009
  6. VIREAD [Suspect]
     Active Substance: TENOFOVIR DISOPROXIL FUMARATE
     Dosage: UNK
     Route: 048
     Dates: start: 2004, end: 2013
  7. COMBIVIR [Concomitant]
     Active Substance: LAMIVUDINE\ZIDOVUDINE
  8. KALETRA [Concomitant]
     Active Substance: LOPINAVIR\RITONAVIR
  9. SUSTIVA [Concomitant]
     Active Substance: EFAVIRENZ
  10. VIRAMUNE [Concomitant]
     Active Substance: NEVIRAPINE
  11. ZOVIRAX [Concomitant]
     Active Substance: ACYCLOVIR
  12. ALBUTEROL SULFATE [Concomitant]
     Active Substance: ALBUTEROL SULFATE
  13. ZYLOPRIM [Concomitant]
     Active Substance: ALLOPURINOL
  14. NORVASC [Concomitant]
     Active Substance: AMLODIPINE BESYLATE
  15. AMOXICILLIN\CLAVULANATE POTASSIUM [Concomitant]
     Active Substance: AMOXICILLIN\CLAVULANATE POTASSIUM
  16. UNASYN [Concomitant]
     Active Substance: AMPICILLIN SODIUM\SULBACTAM SODIUM
  17. AZITHROMYCIN [Concomitant]
     Active Substance: AZITHROMYCIN
  18. CALCIUM GLUCONATE [Concomitant]
     Active Substance: CALCIUM GLUCONATE
  19. MAXIPIME [Concomitant]
     Active Substance: CEFEPIME HYDROCHLORIDE
  20. CEFTAROLINE [Concomitant]
     Active Substance: CEFTAROLINE
  21. ROCEPHIN [Concomitant]
     Active Substance: CEFTRIAXONE SODIUM
  22. CHLORIDE ION [Concomitant]
     Active Substance: CHLORIDE ION
  23. CLINDAMYCIN [Concomitant]
     Active Substance: CLINDAMYCIN
  24. CLONIDINE [Concomitant]
     Active Substance: CLONIDINE
  25. PREZISTA [Concomitant]
     Active Substance: DARUNAVIR ETHANOLATE
  26. DEXTROSE [Concomitant]
     Active Substance: DEXTROSE\DEXTROSE MONOHYDRATE
  27. BENADRYL [Concomitant]
     Active Substance: DIPHENHYDRAMINE HYDROCHLORIDE
  28. ADOXA [DOXYCYCLINE] [Concomitant]
  29. COLACE [Concomitant]
     Active Substance: DOCUSATE SODIUM
  30. MARINOL [Concomitant]
     Active Substance: DRONABINOL
  31. PROCRIT [Concomitant]
     Active Substance: ERYTHROPOIETIN
  32. INTELENCE [Concomitant]
     Active Substance: ETRAVIRINE
  33. SUBLIMAZE [Concomitant]
     Active Substance: FENTANYL CITRATE
  34. FERROUS GLUCONATE [Concomitant]
     Active Substance: FERROUS GLUCONATE
  35. DIFLUCAN [Concomitant]
     Active Substance: FLUCONAZOLE
  36. FOLVITE [Concomitant]
     Active Substance: FOLIC ACID
  37. LASIX [Concomitant]
     Active Substance: FUROSEMIDE
  38. CYTOVENE IV [Concomitant]
     Active Substance: GANCICLOVIR SODIUM
  39. HALDOL [Concomitant]
     Active Substance: HALOPERIDOL
  40. VICODIN [Concomitant]
     Active Substance: ACETAMINOPHEN\HYDROCODONE BITARTRATE
  41. HYDROCORTISONE/PRAMOXINE [HYDROCORTISONE;PRAMOCAINE] [Concomitant]
  42. NAPROXEN [Concomitant]
     Active Substance: NAPROXEN
  43. INSULIN NOS [Concomitant]
     Active Substance: INSULIN NOS
  44. IPRATROPIUM BROMIDE [Concomitant]
     Active Substance: IPRATROPIUM BROMIDE\IPRATROPIUM BROMIDE ANHYDROUS
  45. LEVAQUIN [Concomitant]
     Active Substance: LEVOFLOXACIN
  46. ZYVOX [Concomitant]
     Active Substance: LINEZOLID
  47. ATIVAN [Concomitant]
     Active Substance: LORAZEPAM
  48. FLAGYL [Concomitant]
     Active Substance: METRONIDAZOLE\METRONIDAZOLE HYDROCHLORIDE
  49. MYCOSTATIN [Concomitant]
     Active Substance: NYSTATIN
  50. ZOFRAN [Concomitant]
     Active Substance: ONDANSETRON HYDROCHLORIDE
  51. OXYCODONE [Concomitant]
     Active Substance: OXYCODONE
  52. OXYCODONE HYDROCHLORIDE [Concomitant]
     Active Substance: OXYCODONE HYDROCHLORIDE
  53. ROXICODONE [Concomitant]
     Active Substance: OXYCODONE HYDROCHLORIDE
  54. PANTOPRAZOLE [Concomitant]
     Active Substance: PANTOPRAZOLE
  55. PAXIL [Concomitant]
     Active Substance: PAROXETINE HYDROCHLORIDE
  56. K-DUR [Concomitant]
     Active Substance: POTASSIUM CHLORIDE
  57. PROAIR HFA [Concomitant]
     Active Substance: ALBUTEROL SULFATE
  58. PHENERGAN [Concomitant]
     Active Substance: PROMETHAZINE HYDROCHLORIDE
  59. NORVIR [Concomitant]
     Active Substance: RITONAVIR
  60. SENOKOT-S [Concomitant]
     Active Substance: DOCUSATE SODIUM\SENNOSIDES
  61. SODIUM CHLORIDE [Concomitant]
     Active Substance: SODIUM CHLORIDE
  62. PROTOPIC [Concomitant]
     Active Substance: TACROLIMUS
  63. NEBCIN [Concomitant]
     Active Substance: TOBRAMYCIN SULFATE
  64. BACTRIM DS [Concomitant]
     Active Substance: SULFAMETHOXAZOLE\TRIMETHOPRIM
  65. VALCYTE [Concomitant]
     Active Substance: VALGANCICLOVIR HYDROCHLORIDE
  66. VALTREX [Concomitant]
     Active Substance: VALACYCLOVIR HYDROCHLORIDE
  67. VANCOMYCIN [Concomitant]
     Active Substance: VANCOMYCIN
  68. VITAMIN D2 [Concomitant]
     Active Substance: ERGOCALCIFEROL
  69. ZOSYN [Concomitant]
     Active Substance: PIPERACILLIN SODIUM\TAZOBACTAM SODIUM

REACTIONS (15)
  - Death [Fatal]
  - Skeletal injury [Fatal]
  - Renal injury [Fatal]
  - Chronic kidney disease [Recovered/Resolved]
  - Renal failure [Recovered/Resolved]
  - Acute kidney injury [Recovered/Resolved]
  - Loss of personal independence in daily activities [Not Recovered/Not Resolved]
  - Quality of life decreased [Not Recovered/Not Resolved]
  - Decreased activity [Not Recovered/Not Resolved]
  - Fear [Not Recovered/Not Resolved]
  - Impaired work ability [Not Recovered/Not Resolved]
  - Anhedonia [Not Recovered/Not Resolved]
  - Emotional distress [Not Recovered/Not Resolved]
  - Anxiety [Not Recovered/Not Resolved]
  - Pain [Not Recovered/Not Resolved]

NARRATIVE: CASE EVENT DATE: 20120101
